FAERS Safety Report 19622636 (Version 1)
Quarter: 2021Q3

REPORT INFORMATION
  Report Type: Other
  Country: US (occurrence: US)
  Receive Date: 20210728
  Receipt Date: 20210728
  Transmission Date: 20211014
  Serious: No
  Sender: FDA-Public Use
  Company Number: US-ACCORD-207731

PATIENT

DRUGS (1)
  1. AMITRIPTYLINE ACCORD HEALTH CARE [Suspect]
     Active Substance: AMITRIPTYLINE
     Indication: PRODUCT USED FOR UNKNOWN INDICATION

REACTIONS (1)
  - Hypoaesthesia oral [Unknown]

NARRATIVE: CASE EVENT DATE: 20201012
